FAERS Safety Report 11337289 (Version 1)
Quarter: 2015Q3

REPORT INFORMATION
  Report Type: Spontaneous
  Country: US (occurrence: US)
  Receive Date: 20150803
  Receipt Date: 20150803
  Transmission Date: 20151125
  Serious: No
  Sender: FDA-Public Use
  Company Number: US-ELI_LILLY_AND_COMPANY-US200903002049

PATIENT
  Age: 50 Year
  Sex: Male

DRUGS (2)
  1. ZYPREXA [Suspect]
     Active Substance: OLANZAPINE
     Indication: BIPOLAR I DISORDER
     Dosage: 25 MG, DAILY (1/D)
     Dates: start: 1997
  2. LITHIUM. [Concomitant]
     Active Substance: LITHIUM

REACTIONS (2)
  - Blood glucose increased [Unknown]
  - Psychotic disorder [Unknown]
